FAERS Safety Report 5704477-0 (Version None)
Quarter: 2008Q2

REPORT INFORMATION
  Report Type: 
  Country: None (occurrence: None)
  Receive Date: 20080414
  Receipt Date: 20080402
  Transmission Date: 20081010
  Serious: Yes (Death, Life-Threatening, Other)
  Sender: FDA-Public Use
  Company Number: JP-MERCK-0803USA01074

PATIENT
  Age: 88 Year
  Sex: Female

DRUGS (8)
  1. PRIMAXIN [Suspect]
     Indication: SEPTIC SHOCK
     Route: 041
  2. MAXIPIME [Concomitant]
     Indication: INFECTION
     Route: 051
  3. MAXIPIME [Concomitant]
     Indication: BODY TEMPERATURE FLUCTUATION
     Route: 051
  4. CARBAZOCHROME [Concomitant]
     Indication: GASTROINTESTINAL HAEMORRHAGE
     Route: 065
  5. TRANEXAMIC ACID [Concomitant]
     Indication: GASTROINTESTINAL HAEMORRHAGE
     Route: 065
  6. PREDNISOLONE [Concomitant]
     Indication: IDIOPATHIC THROMBOCYTOPENIC PURPURA
     Route: 065
  7. VANCOMYCIN HYDROCHLORIDE [Concomitant]
     Indication: PSEUDOMEMBRANOUS COLITIS
     Route: 048
  8. FUROSEMIDE [Concomitant]
     Indication: URINE OUTPUT DECREASED
     Route: 065

REACTIONS (22)
  - ARGININOSUCCINATE SYNTHETASE DEFICIENCY [None]
  - BLOOD PRESSURE DECREASED [None]
  - CEREBRAL HAEMORRHAGE [None]
  - CEREBRAL INFARCTION [None]
  - DEHYDRATION [None]
  - DEMYELINATION [None]
  - DEPRESSED LEVEL OF CONSCIOUSNESS [None]
  - ENCEPHALOMALACIA [None]
  - ENCEPHALOPATHY [None]
  - GASTROINTESTINAL HAEMORRHAGE [None]
  - HAEMORRHAGIC DIATHESIS [None]
  - HIPPOCAMPAL SCLEROSIS [None]
  - LYMPH NODE TUBERCULOSIS [None]
  - MELAS SYNDROME [None]
  - MUSCLE SPASMS [None]
  - MYELODYSPLASTIC SYNDROME [None]
  - NECK PAIN [None]
  - NERVOUS SYSTEM DISORDER [None]
  - OBSTRUCTION [None]
  - OEDEMA [None]
  - PNEUMONIA [None]
  - RESPIRATORY ARREST [None]
